FAERS Safety Report 7570078-5 (Version None)
Quarter: 2011Q2

REPORT INFORMATION
  Report Type: 
  Country: None (occurrence: None)
  Receive Date: 20110624
  Receipt Date: 20110610
  Transmission Date: 20111010
  Serious: Yes (Other)
  Sender: FDA-Public Use
  Company Number: ES-RANBAXY-2011RR-44336

PATIENT
  Age: 83 Year
  Sex: Female

DRUGS (6)
  1. AMOXICILLIN [Suspect]
     Dosage: 20 MG, UNK
     Route: 023
  2. CEFUROXIME [Concomitant]
     Dosage: 20 MG, UNK
     Route: 023
  3. AMOXICILLIN [Suspect]
     Indication: SKIN TEST
     Dosage: 2 MG, UNK
     Route: 023
  4. AMOXICILLIN AND CLAVULANATE POTASSIUM [Suspect]
     Indication: SKIN TEST
     Dosage: UNK
     Route: 023
  5. AMOXICILLIN AND CLAVULANATE POTASSIUM [Suspect]
     Indication: RESPIRATORY TRACT INFECTION
     Dosage: UNK
     Route: 048
  6. CEFUROXIME [Concomitant]
     Indication: SKIN TEST
     Dosage: 2 MG, UNK
     Route: 023

REACTIONS (3)
  - GENERALISED ERYTHEMA [None]
  - RASH GENERALISED [None]
  - PRURITUS [None]
